FAERS Safety Report 5261929-8 (Version None)
Quarter: 2007Q1

REPORT INFORMATION
  Report Type: 
  Country: None (occurrence: None)
  Receive Date: 20070308
  Receipt Date: 20070222
  Transmission Date: 20070707
  Serious: Yes (Hospitalization)
  Sender: FDA-Public Use
  Company Number: DILUS-07-0183

PATIENT
  Age: 12 Year
  Sex: Male

DRUGS (3)
  1. PROPOFOL [Suspect]
     Indication: SEDATION
  2. OPIATES (ALL OTHER THERAPEUTIC PRODUCTS) [Concomitant]
  3. BENZODIAZEPINES (BENZODIAZEPINE DERIVATIVES) [Concomitant]

REACTIONS (1)
  - PANCREATITIS [None]
